FAERS Safety Report 9748194 (Version 2)
Quarter: 2014Q1

REPORT INFORMATION
  Report Type: Spontaneous
  Country: US (occurrence: US)
  Receive Date: 20131212
  Receipt Date: 20140123
  Transmission Date: 20141002
  Serious: No
  Sender: FDA-Public Use
  Company Number: US-PFIZER INC-2013352734

PATIENT
  Age: 52 Year
  Sex: Male

DRUGS (1)
  1. XELJANZ [Suspect]
     Dosage: 5 MG, 2X/DAY
     Dates: start: 20131026, end: 20131202

REACTIONS (3)
  - Chest pain [Recovered/Resolved]
  - Abnormal dreams [Recovered/Resolved]
  - Depression [Recovered/Resolved]
